FAERS Safety Report 6395130-1 (Version None)
Quarter: 2009Q4

REPORT INFORMATION
  Report Type: 
  Country: None (occurrence: None)
  Receive Date: 20091009
  Receipt Date: 20090930
  Transmission Date: 20100525
  Serious: Yes (Death)
  Sender: FDA-Public Use
  Company Number: US-PFIZER INC-2009239656

PATIENT
  Sex: Male
  Weight: 78.005 kg

DRUGS (11)
  1. REVATIO [Suspect]
     Indication: PULMONARY HYPERTENSION
     Dosage: 20 MG, 3X/DAY
     Route: 048
  2. LANOXIN [Concomitant]
     Dosage: 125 MG, 1X/DAY
  3. COMBIVENT [Concomitant]
     Dosage: UNK
  4. GLUCOPHAGE XR [Concomitant]
     Dosage: 500 MG, 1X/DAY
  5. COUMADIN [Concomitant]
     Dosage: 2 MG, 1X/DAY
  6. COREG [Concomitant]
     Dosage: 25 MG, 2X/DAY
  7. SIMVASTATIN [Concomitant]
     Dosage: 40 MG, 1X/DAY
  8. MAGNESIUM OXIDE [Concomitant]
     Dosage: 400 MG, 3X/DAY
  9. ASPIRIN [Concomitant]
     Dosage: 81 MG, 1X/DAY
  10. LASIX [Concomitant]
     Dosage: 40 MG, 1X/DAY
  11. ALDACTONE [Concomitant]
     Dosage: 25 MG, 1X/DAY

REACTIONS (1)
  - DEATH [None]
